FAERS Safety Report 20734651 (Version 1)
Quarter: 2022Q2

REPORT INFORMATION
  Report Type: Spontaneous
  Country: US (occurrence: None)
  Receive Date: 20220420
  Receipt Date: 20220420
  Transmission Date: 20220721
  Serious: Yes (Other)
  Sender: FDA-Public Use
  Company Number: None

PATIENT
  Age: 40 Year
  Sex: Female
  Weight: 56.25 kg

DRUGS (1)
  1. .DELTA.8-TETRAHYDROCANNABINOL\HERBALS [Suspect]
     Active Substance: .DELTA.8-TETRAHYDROCANNABINOL\HERBALS
     Indication: Product used for unknown indication
     Dosage: OTHER QUANTITY : 12 OUNCE(S);?
     Route: 048
     Dates: start: 20220415, end: 20220415

REACTIONS (6)
  - Feeling abnormal [None]
  - Sedation [None]
  - Vision blurred [None]
  - Headache [None]
  - Impaired driving ability [None]
  - Euphoric mood [None]

NARRATIVE: CASE EVENT DATE: 20220415
